FAERS Safety Report 9132483 (Version 1)
Quarter: 2013Q1

REPORT INFORMATION
  Report Type: Spontaneous
  Country: US (occurrence: US)
  Receive Date: 20130120
  Receipt Date: 20130120
  Transmission Date: 20140127
  Serious: No
  Sender: FDA-Public Use
  Company Number: US-ALLERGAN-1212693US

PATIENT
  Sex: Female

DRUGS (4)
  1. BOTOX COSMETIC [Suspect]
     Indication: SKIN WRINKLING
     Dosage: 37 UNITS, SINGLE
     Route: 030
     Dates: start: 20120904, end: 20120904
  2. BOTOX COSMETIC [Suspect]
     Indication: SKIN WRINKLING
  3. BOTOX COSMETIC [Suspect]
     Indication: SKIN WRINKLING
  4. SYNTHROID [Concomitant]
     Indication: HYPOTHYROIDISM
     Dosage: UNK

REACTIONS (2)
  - Skin disorder [Unknown]
  - Face oedema [Unknown]
